FAERS Safety Report 10350998 (Version 1)
Quarter: 2014Q3

REPORT INFORMATION
  Report Type: Spontaneous
  Country: FR (occurrence: FR)
  Receive Date: 20140730
  Receipt Date: 20140730
  Transmission Date: 20150326
  Serious: Yes (Other)
  Sender: FDA-Public Use
  Company Number: FR-SA-2014SA101116

PATIENT
  Sex: Male

DRUGS (5)
  1. KRENOSIN [Concomitant]
     Indication: SUPRAVENTRICULAR TACHYCARDIA
  2. AMIODARONE [Interacting]
     Active Substance: AMIODARONE
     Indication: SUPRAVENTRICULAR TACHYCARDIA
     Route: 065
  3. INEXIUM [Concomitant]
     Active Substance: ESOMEPRAZOLE
     Indication: GASTROOESOPHAGEAL REFLUX DISEASE
  4. AMIODARONE [Suspect]
     Active Substance: AMIODARONE
     Indication: SUPRAVENTRICULAR TACHYCARDIA
     Route: 065
  5. ALUMINIUM HYDROXIDE/MAGNESIUM TRISILICATE [Interacting]
     Active Substance: ALUMINUM HYDROXIDE\MAGNESIUM TRISILICATE
     Indication: GASTROOESOPHAGEAL REFLUX DISEASE
     Route: 065

REACTIONS (3)
  - Supraventricular tachycardia [Recovered/Resolved]
  - Drug interaction [Unknown]
  - Treatment failure [Unknown]
